FAERS Safety Report 5761935-0 (Version None)
Quarter: 2008Q2

REPORT INFORMATION
  Report Type: 
  Country: None (occurrence: None)
  Receive Date: 20080603
  Receipt Date: 20080522
  Transmission Date: 20081010
  Serious: Yes (Other)
  Sender: FDA-Public Use
  Company Number: ALL1-2008-01367

PATIENT
  Age: 16 Year
  Sex: Female
  Weight: 51 kg

DRUGS (5)
  1. VYVANSE [Suspect]
     Indication: ATTENTION DEFICIT/HYPERACTIVITY DISORDER
     Dosage: 30 MG, 1X/DAY:QD, ORAL; 30 MG, 1X/DAY:QD, ORAL
     Route: 048
     Dates: start: 20080201, end: 20080503
  2. VYVANSE [Suspect]
     Indication: ATTENTION DEFICIT/HYPERACTIVITY DISORDER
     Dosage: 30 MG, 1X/DAY:QD, ORAL; 30 MG, 1X/DAY:QD, ORAL
     Route: 048
     Dates: start: 20080501
  3. RESPA-1ST          (GUAIFENESIN, PSEUDOEPHEDRINE HYDROCHLORIDE) [Concomitant]
  4. ALLEGRA             /01314201/ (FEXOFENADINE) [Concomitant]
  5. ORTHO TRI-CYCLEN LO [Concomitant]

REACTIONS (2)
  - ANXIETY [None]
  - RAYNAUD'S PHENOMENON [None]
